FAERS Safety Report 5578205-6 (Version None)
Quarter: 2007Q4

REPORT INFORMATION
  Report Type: 
  Country: None (occurrence: None)
  Receive Date: 20071227
  Receipt Date: 20071210
  Transmission Date: 20080405
  Serious: Yes (Hospitalization)
  Sender: FDA-Public Use
  Company Number: 2007S1000296

PATIENT
  Age: 45 Year
  Sex: Female

DRUGS (2)
  1. ACITRETIN [Suspect]
     Indication: PSORIASIS
     Dosage: 50 MG; QD; PO; 10 MG; QD; PO
     Route: 048
     Dates: start: 20071101, end: 20071101
  2. ACITRETIN [Suspect]
     Indication: PSORIASIS
     Dosage: 50 MG; QD; PO; 10 MG; QD; PO
     Route: 048
     Dates: start: 20071101

REACTIONS (1)
  - ATRIAL FIBRILLATION [None]
